FAERS Safety Report 11860094 (Version 1)
Quarter: 2015Q4

REPORT INFORMATION
  Report Type: Report from Study
  Country: US (occurrence: US)
  Receive Date: 20151222
  Receipt Date: 20151222
  Transmission Date: 20160305
  Serious: No
  Sender: FDA-Public Use
  Company Number: US-THERATECHNOLOGIES, INC.-TH-2015-00054

PATIENT
  Age: 52 Year
  Sex: Male

DRUGS (1)
  1. EGRIFTA [Suspect]
     Active Substance: TESAMORELIN
     Indication: LIPODYSTROPHY ACQUIRED
     Dosage: 2 MILLIGRAM
     Route: 058
     Dates: start: 20140710

REACTIONS (4)
  - Insomnia [None]
  - Vomiting [None]
  - Nausea [None]
  - Hyperhidrosis [None]
